FAERS Safety Report 24669906 (Version 1)
Quarter: 2024Q4

REPORT INFORMATION
  Report Type: Spontaneous
  Country: US (occurrence: US)
  Receive Date: 20241127
  Receipt Date: 20241127
  Transmission Date: 20250115
  Serious: Yes (Other)
  Sender: OTSUKA
  Company Number: US-OTSUKA-2024_031310

PATIENT
  Age: 54 Year
  Sex: Female

DRUGS (1)
  1. REXULTI [Suspect]
     Active Substance: BREXPIPRAZOLE
     Indication: Product used for unknown indication
     Dosage: 1 DF, QD (0.25MG ONE TABLET BY MOUTH DAILY)
     Route: 048
     Dates: start: 20241011, end: 20241031

REACTIONS (4)
  - Depression [Recovering/Resolving]
  - Aggression [Recovering/Resolving]
  - Malaise [Recovering/Resolving]
  - Agitation [Recovering/Resolving]

NARRATIVE: CASE EVENT DATE: 20241014
